FAERS Safety Report 15504425 (Version 1)
Quarter: 2018Q4

REPORT INFORMATION
  Report Type: Spontaneous
  Country: US (occurrence: US)
  Receive Date: 20181009
  Receipt Date: 20181009
  Transmission Date: 20190205
  Serious: Yes (Other)
  Sender: FDA-Public Use
  Company Number: None

PATIENT
  Age: 61 Year
  Sex: Female
  Weight: 117 kg

DRUGS (1)
  1. BASAGLAR [Suspect]
     Active Substance: INSULIN GLARGINE
     Indication: DIABETES MELLITUS
     Dates: start: 20180705, end: 20180706

REACTIONS (5)
  - Product substitution issue [None]
  - Hypersensitivity [None]
  - Erythema [None]
  - Pruritus [None]
  - Lip swelling [None]

NARRATIVE: CASE EVENT DATE: 20180706
